FAERS Safety Report 25654215 (Version 2)
Quarter: 2025Q3

REPORT INFORMATION
  Report Type: Spontaneous
  Country: US (occurrence: US)
  Receive Date: 20250807
  Receipt Date: 20250825
  Transmission Date: 20251021
  Serious: No
  Sender: NOVARTIS
  Company Number: US-002147023-NVSC2025US121931

PATIENT
  Sex: Female

DRUGS (1)
  1. COARTEM [Suspect]
     Active Substance: ARTEMETHER\LUMEFANTRINE
     Indication: Lyme disease
     Route: 065

REACTIONS (4)
  - Drug ineffective [Unknown]
  - Illness [Unknown]
  - Product use in unapproved indication [Unknown]
  - Babesiosis [Unknown]
